FAERS Safety Report 4337131-0 (Version None)
Quarter: 2004Q2

REPORT INFORMATION
  Report Type: 
  Country: None (occurrence: None)
  Receive Date: 20040408
  Receipt Date: 20040330
  Transmission Date: 20050107
  Serious: Yes (Other)
  Sender: FDA-Public Use
  Company Number: HQWYE290731MAR04

PATIENT
  Sex: Female

DRUGS (2)
  1. LOETTE (LEVONORGESTREL/ETHINYL ESTRADIOL) [Suspect]
     Indication: ORAL CONTRACEPTION
     Dosage: 1 TABLET 1X PER DAY ORAL
     Route: 048
  2. CITALOPRAM [Concomitant]

REACTIONS (1)
  - JAUNDICE [None]
